FAERS Safety Report 9377086 (Version 1)
Quarter: 2013Q4

REPORT INFORMATION
  Report Type: Spontaneous
  Country: US (occurrence: None)
  Receive Date: 20130628
  Receipt Date: 20130628
  Transmission Date: 20140711
  Serious: Yes (Hospitalization)
  Sender: FDA-Public Use
  Company Number: None

PATIENT
  Age: 56 Year
  Sex: Male
  Weight: 103.87 kg

DRUGS (15)
  1. GEMCITABINE [Suspect]
     Indication: PANCREATIC CARCINOMA METASTATIC
     Route: 042
     Dates: start: 20130524, end: 20130607
  2. CABOZANTINIB (XL 184), EXELIXIS [Suspect]
     Indication: PANCREATIC CARCINOMA METASTATIC
     Route: 048
     Dates: start: 20130517, end: 20130614
  3. NORCO [Concomitant]
  4. EMLA CREAM [Concomitant]
  5. ZESTRIL [Concomitant]
  6. GLUCOPHAGE [Concomitant]
  7. METOPROLOL TARTRATE [Concomitant]
  8. MULTIVITAMIN [Concomitant]
  9. ZOFRAN [Concomitant]
  10. MIRALAX [Concomitant]
  11. PROCHLORPERAZINE [Concomitant]
  12. ZANTAC [Concomitant]
  13. AMBIEN [Concomitant]
  14. MARINOL [Concomitant]
  15. MS CONTIN [Concomitant]

REACTIONS (1)
  - Biliary tract infection [None]
